FAERS Safety Report 18425215 (Version 1)
Quarter: 2020Q4

REPORT INFORMATION
  Report Type: Spontaneous
  Country: CA (occurrence: CA)
  Receive Date: 20201026
  Receipt Date: 20201026
  Transmission Date: 20210114
  Serious: Yes (Other)
  Sender: FDA-Public Use
  Company Number: CA-GP-PHARM S.A.-2093109

PATIENT
  Age: 46 Year
  Sex: Female

DRUGS (6)
  1. GONADORELIN DIACETATE TETRAHYDRATE [Suspect]
     Active Substance: GONADORELIN DIACETATE TETRAHYDRATE
     Route: 065
  2. KISQALI [Suspect]
     Active Substance: RIBOCICLIB
     Route: 048
  3. LETROZOLE. [Suspect]
     Active Substance: LETROZOLE
     Route: 065
  4. KISQALI [Suspect]
     Active Substance: RIBOCICLIB
     Route: 048
  5. KISQALI [Suspect]
     Active Substance: RIBOCICLIB
     Route: 048
  6. LUTRATE DEPOT [Suspect]
     Active Substance: LEUPROLIDE ACETATE
     Route: 065

REACTIONS (3)
  - Off label use [Unknown]
  - Neutrophil count decreased [Unknown]
  - CSF white blood cell count decreased [Unknown]
